FAERS Safety Report 20081830 (Version 2)
Quarter: 2022Q1

REPORT INFORMATION
  Report Type: Spontaneous
  Country: US (occurrence: US)
  Receive Date: 20211117
  Receipt Date: 20220103
  Transmission Date: 20220423
  Serious: No
  Sender: FDA-Public Use
  Company Number: US-ORGANON-O2111USA000415

PATIENT
  Age: 17 Year
  Sex: Female
  Weight: 96.61 kg

DRUGS (1)
  1. NEXPLANON [Suspect]
     Active Substance: ETONOGESTREL
     Indication: Contraception
     Dosage: 68 MILLIGRAM (1 IMPLANT AT LEFT ARM FOR THREE YEARS)
     Route: 058
     Dates: start: 20210721

REACTIONS (2)
  - Device kink [Not Recovered/Not Resolved]
  - Medical device site discomfort [Unknown]

NARRATIVE: CASE EVENT DATE: 20211101
